FAERS Safety Report 8949068 (Version 1)
Quarter: 2012Q4

REPORT INFORMATION
  Report Type: 
  Country: DK (occurrence: NZ)
  Receive Date: 20121206
  Receipt Date: 20121206
  Transmission Date: 20130627
  Serious: Yes (Hospitalization)
  Sender: FDA-Public Use
  Company Number: NZ-FRI-1000040844

PATIENT
  Age: 82 Year
  Sex: Female

DRUGS (11)
  1. CITALOPRAM [Suspect]
     Dosage: 20 mg
  2. PANTOPRAZOLE [Interacting]
     Dosage: 40 mg
  3. FUROSEMIDE [Concomitant]
  4. SIMVASTATIN [Concomitant]
  5. DILTIAZEM [Concomitant]
  6. METOPROLOL [Concomitant]
  7. ASPIRIN [Concomitant]
  8. CALCIFEROL [Concomitant]
  9. THIAMINE [Concomitant]
  10. IBUPROFEN PRN [Concomitant]
  11. LAXSOL [Concomitant]

REACTIONS (2)
  - Hyponatraemia [Unknown]
  - Drug interaction [Unknown]
